FAERS Safety Report 25681615 (Version 1)
Quarter: 2025Q3

REPORT INFORMATION
  Report Type: Spontaneous
  Country: ZA (occurrence: ZA)
  Receive Date: 20250814
  Receipt Date: 20250814
  Transmission Date: 20251020
  Serious: Yes (Other)
  Sender: RANBAXY
  Company Number: ZA-SUN PHARMACEUTICAL INDUSTRIES LTD-2025R1-522705

PATIENT
  Sex: Male

DRUGS (3)
  1. VENLAFAXINE [Suspect]
     Active Substance: VENLAFAXINE HYDROCHLORIDE
     Indication: Depression
     Route: 065
     Dates: start: 20250627
  2. VENLAFAXINE [Suspect]
     Active Substance: VENLAFAXINE HYDROCHLORIDE
     Indication: Anxiety
     Route: 065
     Dates: start: 20250627
  3. VENLAFAXINE [Suspect]
     Active Substance: VENLAFAXINE HYDROCHLORIDE
     Indication: Attention deficit hyperactivity disorder

REACTIONS (5)
  - Dehydration [Unknown]
  - Diarrhoea [Recovered/Resolved]
  - Nausea [Unknown]
  - Drug ineffective [Unknown]
  - Product solubility abnormal [Unknown]
